FAERS Safety Report 4723338-7 (Version None)
Quarter: 2005Q3

REPORT INFORMATION
  Report Type: 
  Country: None (occurrence: None)
  Receive Date: 20050725
  Receipt Date: 20050720
  Transmission Date: 20060218
  Serious: Yes (Hospitalization)
  Sender: FDA-Public Use
  Company Number: PHBS2005US10442

PATIENT
  Age: 11 Month
  Sex: Female
  Weight: 7 kg

DRUGS (1)
  1. RIVASTIGMINE [Suspect]
     Route: 048

REACTIONS (7)
  - CHOLINERGIC SYNDROME [None]
  - CRYING [None]
  - DRUG TOXICITY [None]
  - HYPOREFLEXIA [None]
  - HYPOTONIA [None]
  - MIOSIS [None]
  - MUSCULAR WEAKNESS [None]
